FAERS Safety Report 17876363 (Version 1)
Quarter: 2020Q2

REPORT INFORMATION
  Report Type: Spontaneous
  Country: DE (occurrence: DE)
  Receive Date: 20200609
  Receipt Date: 20200609
  Transmission Date: 20200714
  Serious: Yes (Congenital Anomaly)
  Sender: FDA-Public Use
  Company Number: DE-MYLANLABS-2020M1054884

PATIENT
  Age: 1 Day
  Sex: Male
  Weight: 2.92 kg

DRUGS (3)
  1. METOPROLOL. [Concomitant]
     Active Substance: METOPROLOL
     Indication: HYPERTENSION
     Dosage: 95 MILLIGRAM, QD (95 [MG/D (2X47.5) ] 2 SEPARATED DOSES)
     Route: 064
     Dates: start: 20190329, end: 20191217
  2. CANDESARTAN. [Suspect]
     Active Substance: CANDESARTAN
     Indication: HYPERTENSION
     Dosage: 4 MILLIGRAM, QD (4 MG/D )
     Route: 064
     Dates: start: 20190329, end: 20191217
  3. L-THYROXIN                         /00068002/ [Concomitant]
     Active Substance: LEVOTHYROXINE SODIUM
     Indication: HYPOTHYROIDISM
     Dosage: UNK
     Route: 064

REACTIONS (6)
  - Joint contracture [Unknown]
  - Foot deformity [Unknown]
  - Renal dysplasia [Unknown]
  - Foetal exposure during pregnancy [Recovered/Resolved]
  - Polydactyly [Unknown]
  - Cranial sutures widening [Unknown]

NARRATIVE: CASE EVENT DATE: 20190329
